FAERS Safety Report 13638112 (Version 1)
Quarter: 2017Q2

REPORT INFORMATION
  Report Type: Spontaneous
  Country: AU (occurrence: AU)
  Receive Date: 20170609
  Receipt Date: 20170609
  Transmission Date: 20170830
  Serious: Yes (Other)
  Sender: FDA-Public Use
  Company Number: AU-UCBSA-2017022055

PATIENT
  Age: 72 Year
  Sex: Male

DRUGS (1)
  1. NEUPRO [Suspect]
     Active Substance: ROTIGOTINE
     Indication: PRODUCT USED FOR UNKNOWN INDICATION
     Dosage: 6 MG, ONCE DAILY (QD)
     Route: 062

REACTIONS (2)
  - Sexual abuse [Unknown]
  - Impulse-control disorder [Unknown]

NARRATIVE: CASE EVENT DATE: 201611
